FAERS Safety Report 6688829-0 (Version None)
Quarter: 2010Q2

REPORT INFORMATION
  Report Type: 
  Country: None (occurrence: None)
  Receive Date: 20100420
  Receipt Date: 20100408
  Transmission Date: 20101027
  Serious: Yes (Hospitalization)
  Sender: FDA-Public Use
  Company Number: US-JNJFOC-20100403069

PATIENT
  Age: 12 Year
  Sex: Male

DRUGS (1)
  1. REMICADE [Suspect]
     Indication: INFLAMMATORY BOWEL DISEASE
     Dosage: X 2 DOSES; DATES, DOSE NOT PROVIDED
     Route: 042

REACTIONS (2)
  - PSORIASIS [None]
  - RASH PUSTULAR [None]
